FAERS Safety Report 18496170 (Version 1)
Quarter: 2020Q4

REPORT INFORMATION
  Report Type: Spontaneous
  Country: CO (occurrence: CO)
  Receive Date: 20201112
  Receipt Date: 20201112
  Transmission Date: 20210114
  Serious: Yes (Hospitalization)
  Sender: FDA-Public Use
  Company Number: CO-FRESENIUS KABI-FK202011954

PATIENT
  Age: 64 Year
  Sex: Female

DRUGS (3)
  1. OXALIPLATIN (MANUFACTURER UNKNOWN) [Suspect]
     Active Substance: OXALIPLATIN
     Indication: GALLBLADDER CANCER STAGE IV
     Dosage: LATEST DOSE WAS 20 DAYS AGO
     Route: 065
  2. NO DRUG NAME [Concomitant]
     Active Substance: UNSPECIFIED INGREDIENT
     Indication: PRODUCT USED FOR UNKNOWN INDICATION
     Route: 065
  3. CAPECITABINE. [Concomitant]
     Active Substance: CAPECITABINE
     Indication: GALLBLADDER CANCER STAGE IV
     Route: 065

REACTIONS (1)
  - Thrombotic microangiopathy [Unknown]
